FAERS Safety Report 23604628 (Version 5)
Quarter: 2024Q3

REPORT INFORMATION
  Report Type: Report from Study
  Country: AR (occurrence: AR)
  Receive Date: 20240307
  Receipt Date: 20240822
  Transmission Date: 20241017
  Serious: Yes (Hospitalization, Other)
  Sender: NOVARTIS
  Company Number: AR-002147023-NVSC2024AR046865

PATIENT
  Age: 5 Year
  Sex: Female

DRUGS (3)
  1. TAFINLAR [Suspect]
     Active Substance: DABRAFENIB MESYLATE
     Indication: Astrocytoma
     Dosage: 50 MG, Q12H
     Route: 048
     Dates: start: 20230113
  2. TAFINLAR [Suspect]
     Active Substance: DABRAFENIB MESYLATE
     Dosage: UNK (75 MG/50 MG)
     Route: 065
     Dates: start: 20230606, end: 202312
  3. MEKINIST [Suspect]
     Active Substance: TRAMETINIB DIMETHYL SULFOXIDE
     Indication: Astrocytoma
     Dosage: 0.5 MG, QD
     Route: 048
     Dates: start: 20230113

REACTIONS (19)
  - Pyrexia [Unknown]
  - Skin lesion [Recovered/Resolved]
  - Astrocytoma [Unknown]
  - Malignant neoplasm progression [Unknown]
  - Lymph node pain [Unknown]
  - Balance disorder [Unknown]
  - Hemiparesis [Unknown]
  - Visual impairment [Recovering/Resolving]
  - Neoplasm progression [Unknown]
  - Neutropenia [Recovered/Resolved]
  - Anaphylactic shock [Unknown]
  - Hypokalaemia [Unknown]
  - Septic shock [Unknown]
  - Glioma [Unknown]
  - Leiomyoma [Unknown]
  - Pain [Unknown]
  - Hypotension [Unknown]
  - Off label use [Unknown]
  - Product distribution issue [Unknown]

NARRATIVE: CASE EVENT DATE: 20230113
